FAERS Safety Report 4767630-9 (Version None)
Quarter: 2005Q3

REPORT INFORMATION
  Report Type: 
  Country: None (occurrence: None)
  Receive Date: 20050913
  Receipt Date: 20050830
  Transmission Date: 20060218
  Serious: Yes (Life-Threatening)
  Sender: FDA-Public Use
  Company Number: JP-MERCK-0509USA00113

PATIENT
  Age: 27 Year
  Sex: Female

DRUGS (8)
  1. PRIMAXIN [Suspect]
     Indication: BRONCHITIS
     Route: 041
     Dates: start: 20050829, end: 20050829
  2. BISOLVON [Concomitant]
     Indication: BRONCHITIS
     Route: 065
     Dates: start: 20050829
  3. METILON [Concomitant]
     Indication: BRONCHITIS
     Route: 065
     Dates: start: 20050829
  4. TRANSAMIN [Concomitant]
     Indication: BRONCHITIS
     Route: 065
     Dates: start: 20050829
  5. SODIUM CHLORIDE [Concomitant]
     Indication: BRONCHITIS
     Route: 042
     Dates: start: 20050829
  6. SULPERAZON [Concomitant]
     Indication: BRONCHITIS
     Route: 042
     Dates: start: 20050824, end: 20050824
  7. SULPERAZON [Concomitant]
     Route: 042
     Dates: start: 20050827, end: 20050828
  8. [THERAPY UNSPECIFIED] [Concomitant]
     Route: 048
     Dates: start: 20050820

REACTIONS (2)
  - BLOOD PRESSURE DECREASED [None]
  - SKIN DISORDER [None]
